FAERS Safety Report 6065828-3 (Version None)
Quarter: 2009Q1

REPORT INFORMATION
  Report Type: 
  Country: None (occurrence: None)
  Receive Date: 20090205
  Receipt Date: 20090127
  Transmission Date: 20090719
  Serious: Yes (Other)
  Sender: FDA-Public Use
  Company Number: US-JNJFOC-20090107287

PATIENT
  Sex: Female

DRUGS (11)
  1. FENTANYL TRANSDERMAL SYSTEM [Suspect]
     Indication: PAIN
     Route: 062
  2. POTASSIUM CHLORIDE [Concomitant]
     Indication: HYPOKALAEMIA
     Route: 048
  3. UNSPECIFIED MEDICATION [Concomitant]
     Indication: PAIN
     Route: 065
  4. METOPROLOL TARTRATE [Concomitant]
     Indication: HYPERTENSION
     Route: 048
  5. FELODIPINE [Concomitant]
     Indication: HYPERTENSION
     Route: 048
  6. LISINOPRIL [Concomitant]
     Indication: HYPERTENSION
     Route: 048
  7. FUROSEMIDE [Concomitant]
     Indication: OEDEMA
     Route: 048
  8. FAMOTIDE [Concomitant]
     Indication: GASTROOESOPHAGEAL REFLUX DISEASE
     Route: 048
  9. LORAZEPAM [Concomitant]
     Indication: ANXIETY
     Route: 048
  10. GLIMEPIRIDE [Concomitant]
     Indication: DIABETES MELLITUS
     Route: 048
  11. WARFARIN SODIUM [Concomitant]
     Indication: ANTICOAGULANT THERAPY
     Dosage: EVERY EVENING
     Route: 048

REACTIONS (6)
  - DYSPHAGIA [None]
  - FALL [None]
  - MEMORY IMPAIRMENT [None]
  - OEDEMA PERIPHERAL [None]
  - RASH [None]
  - VOMITING [None]
